FAERS Safety Report 14752038 (Version 1)
Quarter: 2018Q2

REPORT INFORMATION
  Report Type: Spontaneous
  Country: BR (occurrence: BR)
  Receive Date: 20180412
  Receipt Date: 20180412
  Transmission Date: 20180711
  Serious: Yes (Death, Hospitalization, Other)
  Sender: FDA-Public Use
  Company Number: BR-ELI_LILLY_AND_COMPANY-BR201804004897

PATIENT
  Age: 32 Year
  Sex: Female

DRUGS (5)
  1. IRINOTECAN [Concomitant]
     Active Substance: IRINOTECAN
     Indication: GASTRIC CANCER STAGE IV
     Dosage: UNK, CYCLICAL
     Route: 065
  2. CYRAMZA [Suspect]
     Active Substance: RAMUCIRUMAB
     Indication: GASTRIC CANCER STAGE IV
     Dosage: UNK UNK, CYCLICAL
     Route: 065
     Dates: start: 2017
  3. TAXOL [Concomitant]
     Active Substance: PACLITAXEL
     Indication: GASTRIC CANCER STAGE IV
     Dosage: UNK UNK, CYCLICAL
     Route: 065
     Dates: start: 2017
  4. FOLINIC ACID [Concomitant]
     Active Substance: LEUCOVORIN
     Indication: GASTRIC CANCER STAGE IV
     Dosage: UNK, CYCLICAL
     Route: 065
  5. FLUOROURACIL. [Concomitant]
     Active Substance: FLUOROURACIL
     Indication: GASTRIC CANCER STAGE IV
     Dosage: UNK, CYCLICAL
     Route: 065

REACTIONS (10)
  - Spinal cord compression [Unknown]
  - Neuropathy peripheral [Unknown]
  - Neutropenia [Unknown]
  - Neutropenia [Unknown]
  - Diarrhoea [Unknown]
  - Malignant neoplasm progression [Unknown]
  - Neuropathy peripheral [Unknown]
  - Alopecia [Unknown]
  - Neutropenia [Unknown]
  - Death [Fatal]

NARRATIVE: CASE EVENT DATE: 201710
